FAERS Safety Report 4682261-7 (Version None)
Quarter: 2005Q2

REPORT INFORMATION
  Report Type: 
  Country: None (occurrence: None)
  Receive Date: 20050531
  Receipt Date: 20050513
  Transmission Date: 20051028
  Serious: Yes (Life-Threatening, Hospitalization)
  Sender: FDA-Public Use
  Company Number: THYM-10434

PATIENT
  Age: 41 Year
  Sex: Female
  Weight: 73.8 kg

DRUGS (12)
  1. THYMOGLOBULIN [Suspect]
     Indication: GRAFT VERSUS HOST DISEASE
     Dosage: 0.5 MG/KG ONCE IV
     Route: 042
     Dates: start: 20050215, end: 20050215
  2. THYMOGLOBULIN [Suspect]
     Indication: PROPHYLAXIS
     Dosage: 0.5 MG/KG ONCE IV
     Route: 042
     Dates: start: 20050215, end: 20050215
  3. THYMOGLOBULIN [Suspect]
     Indication: PROPHYLAXIS
     Dosage: 2.5 MG/KG ONCE IV
     Route: 042
     Dates: start: 20050216, end: 20050216
  4. THYMOGLOBULIN [Suspect]
     Indication: STEM CELL TRANSPLANT
     Dosage: 3 MG/KG QD IV
     Route: 042
     Dates: start: 20050217, end: 20050217
  5. FLUDARABINE PHOSPHATE [Suspect]
     Indication: PROPHYLAXIS
     Dosage: 56 MG QD IV
     Route: 042
     Dates: start: 20050209, end: 20050217
  6. BUSULFAN [Suspect]
     Indication: STEM CELL TRANSPLANT
     Dosage: 201 MG QD
     Dates: start: 20050213, end: 20050213
  7. BUSULFAN [Suspect]
     Dosage: 326 MG QD
     Dates: start: 20050214, end: 20050215
  8. BUSULFAN [Suspect]
     Dosage: 350 MG QD
     Dates: start: 20050216, end: 20050216
  9. METHOTREXATE [Suspect]
     Indication: PROPHYLAXIS
     Dosage: 19 MG QD IV
     Route: 042
     Dates: start: 20050220, end: 20050220
  10. METHOTREXATE [Suspect]
     Indication: PROPHYLAXIS
     Dosage: 19 MG QD IV
     Route: 042
     Dates: start: 20050222, end: 20050222
  11. METHOTREXATE [Suspect]
     Indication: PROPHYLAXIS
     Dosage: 19 MG QD IV
     Route: 042
     Dates: start: 20050225, end: 20050225
  12. METHOTREXATE [Suspect]
     Indication: PROPHYLAXIS
     Dosage: 19 MG QD IV
     Route: 042
     Dates: start: 20050302, end: 20050302

REACTIONS (12)
  - ALPHA HAEMOLYTIC STREPTOCOCCAL INFECTION [None]
  - ASPERGILLOSIS [None]
  - BACTERIAL CULTURE POSITIVE [None]
  - BRONCHOALVEOLAR LAVAGE ABNORMAL [None]
  - COMPUTERISED TOMOGRAM ABNORMAL [None]
  - ENTEROCOCCAL INFECTION [None]
  - HAEMOPTYSIS [None]
  - LUNG CONSOLIDATION [None]
  - MUCOSAL INFLAMMATION [None]
  - PULMONARY ALVEOLAR HAEMORRHAGE [None]
  - RESPIRATORY DISTRESS [None]
  - THROMBOCYTOPENIA [None]
